FAERS Safety Report 8780211 (Version 1)
Quarter: 2012Q4

REPORT INFORMATION
  Report Type: Spontaneous
  Country: US (occurrence: None)
  Receive Date: 20120904
  Receipt Date: 20120904
  Transmission Date: 20130627
  Serious: Yes (Other)
  Sender: FDA-Public Use
  Company Number: None

PATIENT
  Age: 55 Year
  Sex: Male

DRUGS (1)
  1. PIOGLITAZONE [Suspect]
     Route: 048
     Dates: start: 20120823, end: 20120831

REACTIONS (2)
  - Blood glucose increased [None]
  - Product substitution issue [None]
